FAERS Safety Report 8477264-0 (Version None)
Quarter: 2012Q2

REPORT INFORMATION
  Report Type: 
  Country: None (occurrence: None)
  Receive Date: 20120622
  Receipt Date: 20120410
  Transmission Date: 20120825
  Serious: Yes (Other)
  Sender: FDA-Public Use
  Company Number: ADR-2012-01142

PATIENT
  Sex: Male

DRUGS (2)
  1. LIORESAL [Suspect]
     Indication: CEREBRAL PALSY
     Dosage: 1100 MCG/MDAY
  2. LIORESAL [Suspect]
     Indication: MUSCLE SPASTICITY
     Dosage: 1100 MCG/MDAY

REACTIONS (5)
  - NO THERAPEUTIC RESPONSE [None]
  - IMPLANT SITE SCAR [None]
  - IMPLANT SITE EFFUSION [None]
  - IMPLANT SITE FIBROSIS [None]
  - FOREIGN BODY REACTION [None]
